FAERS Safety Report 16077478 (Version 4)
Quarter: 2020Q2

REPORT INFORMATION
  Report Type: Spontaneous
  Country: US (occurrence: US)
  Receive Date: 20190315
  Receipt Date: 20200427
  Transmission Date: 20200713
  Serious: No
  Sender: FDA-Public Use
  Company Number: US-PFIZER INC-2019107106

PATIENT
  Age: 43 Year
  Sex: Male
  Weight: 58.06 kg

DRUGS (7)
  1. QVAR [Concomitant]
     Active Substance: BECLOMETHASONE DIPROPIONATE
     Indication: NASAL CONGESTION
  2. LYRICA [Suspect]
     Active Substance: PREGABALIN
     Indication: GROIN PAIN
  3. ALLERTEC [Concomitant]
     Active Substance: CETIRIZINE HYDROCHLORIDE
     Indication: ALLERGY TO ARTHROPOD STING
  4. QVAR [Concomitant]
     Active Substance: BECLOMETHASONE DIPROPIONATE
     Indication: ASTHMA
     Dosage: 80 UG, (120 PUFF INHALER)
  5. LYRICA [Suspect]
     Active Substance: PREGABALIN
     Indication: NEURALGIA
     Dosage: 50 MG,  TWICE A DAY (ONE IN MORNING AND ONE AT NIGHT)
     Route: 048
  6. ALLERTEC [Concomitant]
     Active Substance: CETIRIZINE HYDROCHLORIDE
     Indication: ALLERGY TO ANIMAL
     Dosage: 1-2 TABLETS A DAY, USUALLY ONE EVERY 24 HOURS
  7. ALLERTEC [Concomitant]
     Active Substance: CETIRIZINE HYDROCHLORIDE
     Indication: DUST ALLERGY

REACTIONS (2)
  - Therapeutic product effect incomplete [Not Recovered/Not Resolved]
  - Muscle strain [Unknown]
